FAERS Safety Report 8233575-5 (Version None)
Quarter: 2012Q1

REPORT INFORMATION
  Report Type: 
  Country: None (occurrence: None)
  Receive Date: 20120326
  Receipt Date: 20120312
  Transmission Date: 20120608
  Serious: Yes (Other)
  Sender: FDA-Public Use
  Company Number: PHHY2012CZ024721

PATIENT
  Age: 70 Year
  Sex: Male

DRUGS (4)
  1. VITAMIN D [Concomitant]
     Indication: FRACTURE
  2. ZOLEDRONOC ACID [Suspect]
     Indication: HIP FRACTURE
  3. ACTONEL [Concomitant]
     Indication: FRACTURE
     Dosage: 35 MEQ/KG, UNK
  4. CALCIUM CARBONATE [Concomitant]
     Indication: FRACTURE

REACTIONS (1)
  - RENAL DISORDER [None]
